FAERS Safety Report 7728787-0 (Version None)
Quarter: 2011Q3

REPORT INFORMATION
  Report Type: 
  Country: None (occurrence: None)
  Receive Date: 20110831
  Receipt Date: 20110831
  Transmission Date: 20111222
  Serious: Yes (Life-Threatening, Hospitalization)
  Sender: FDA-Public Use
  Company Number: None

PATIENT
  Age: 90 Year
  Sex: Male
  Weight: 99 kg

DRUGS (1)
  1. CARBAMAZEPINE [Suspect]
     Dates: end: 20110616

REACTIONS (1)
  - STEVENS-JOHNSON SYNDROME [None]
